FAERS Safety Report 16434011 (Version 1)
Quarter: 2019Q2

REPORT INFORMATION
  Report Type: Spontaneous
  Country: DE (occurrence: DE)
  Receive Date: 20190614
  Receipt Date: 20190614
  Transmission Date: 20190711
  Serious: Yes (Other)
  Sender: FDA-Public Use
  Company Number: DE-ANIPHARMA-2019-DE-000084

PATIENT
  Age: 53 Year
  Sex: Male

DRUGS (7)
  1. ADENURIC [Concomitant]
     Active Substance: FEBUXOSTAT
     Dosage: 80 MG UNK
     Route: 065
  2. LERCANIDIPINE [Concomitant]
     Active Substance: LERCANIDIPINE
     Dosage: 10 MG QD
     Route: 065
  3. VIANI [Concomitant]
     Active Substance: FLUTICASONE PROPIONATE\SALMETEROL XINAFOATE
     Dosage: EVERY DAY
     Route: 065
  4. DICLOFENAC [Concomitant]
     Active Substance: DICLOFENAC
     Dosage: 75 MG UNK
     Route: 065
  5. POTABA [Suspect]
     Active Substance: AMINOBENZOATE POTASSIUM
     Dosage: 500 MG QD / 3000 MG QID / 3000 MG QID / 3000 MG QID
     Route: 048
  6. CANDESARTAN. [Suspect]
     Active Substance: CANDESARTAN
     Indication: PRODUCT USED FOR UNKNOWN INDICATION
     Dosage: 16 MG QD
     Route: 048
     Dates: end: 201903
  7. HCTZ [Concomitant]
     Active Substance: HYDROCHLOROTHIAZIDE
     Dosage: 25 MG QD
     Route: 065

REACTIONS (4)
  - Measles [Unknown]
  - Urticaria [Recovered/Resolved]
  - Prescribed underdose [Recovered/Resolved]
  - Immune system disorder [Recovering/Resolving]

NARRATIVE: CASE EVENT DATE: 201902
